FAERS Safety Report 24443971 (Version 2)
Quarter: 2025Q3

REPORT INFORMATION
  Report Type: Report from Study
  Country: JP (occurrence: JP)
  Receive Date: 20241016
  Receipt Date: 20250810
  Transmission Date: 20251021
  Serious: Yes (Life-Threatening, Hospitalization, Other)
  Sender: ALEXION PHARMACEUTICALS
  Company Number: JP-AstraZeneca-CH-00621715A

PATIENT
  Age: 73 Year
  Sex: Female
  Weight: 58.2 kg

DRUGS (17)
  1. KANUMA [Suspect]
     Active Substance: SEBELIPASE ALFA
     Indication: Lysosomal acid lipase deficiency
     Dosage: 1 MILLIGRAM/KILOGRAM, Q2W
     Dates: start: 20240402, end: 20240416
  2. KANUMA [Suspect]
     Active Substance: SEBELIPASE ALFA
     Dosage: 1 MILLIGRAM/KILOGRAM, Q3W
     Dates: start: 20240507, end: 20240507
  3. KANUMA [Suspect]
     Active Substance: SEBELIPASE ALFA
     Dosage: 1 MILLIGRAM/KILOGRAM, QMONTH
     Dates: start: 20240604, end: 20240604
  4. KANUMA [Suspect]
     Active Substance: SEBELIPASE ALFA
     Dosage: 1 MILLIGRAM/KILOGRAM, Q2W
     Dates: start: 20240618, end: 20240618
  5. KANUMA [Suspect]
     Active Substance: SEBELIPASE ALFA
     Dosage: 1 MILLIGRAM/KILOGRAM, QMONTH
     Dates: start: 20240716, end: 20240716
  6. KANUMA [Suspect]
     Active Substance: SEBELIPASE ALFA
     Dosage: 1 MILLIGRAM/KILOGRAM, Q2W
     Dates: start: 20240730, end: 20240730
  7. KANUMA [Suspect]
     Active Substance: SEBELIPASE ALFA
     Dates: start: 20240910, end: 20240910
  8. KANUMA [Suspect]
     Active Substance: SEBELIPASE ALFA
     Dosage: 1 MILLIGRAM/KILOGRAM, Q2W
     Dates: start: 20240924, end: 20240924
  9. AMINO ACIDS, SOURCE UNSPECIFIED [Concomitant]
     Active Substance: AMINO ACIDS, SOURCE UNSPECIFIED
     Indication: Hypoalbuminaemia
     Dosage: 4.15 GRAM, BID
  10. Lagnos nf [Concomitant]
     Indication: Hyperammonaemia
     Dosage: 12 GRAM, TID (JELLY)
     Dates: end: 20241202
  11. FUROSEMIDE [Concomitant]
     Active Substance: FUROSEMIDE
     Indication: Oedema due to hepatic disease
     Dosage: 20 MILLIGRAM, QD
  12. TENELIGLIPTIN [Concomitant]
     Active Substance: TENELIGLIPTIN
     Indication: Diabetes mellitus
     Dosage: 40 MILLIGRAM, QD
  13. NEXIUM [Concomitant]
     Active Substance: ESOMEPRAZOLE MAGNESIUM
     Indication: Gastrooesophageal reflux disease
     Dosage: 20 MILLIGRAM, QD
  14. TOLVAPTAN [Concomitant]
     Active Substance: TOLVAPTAN
     Indication: Oedema due to hepatic disease
     Dosage: 7.5 MILLIGRAM, QD
  15. SPIRONOLACTONE [Concomitant]
     Active Substance: SPIRONOLACTONE
     Indication: Oedema due to hepatic disease
     Dosage: 25 MILLIGRAM, QD
  16. RIFAXIMIN [Concomitant]
     Active Substance: RIFAXIMIN
     Indication: Hyperammonaemia
     Dosage: 400 MILLIGRAM, TID
  17. LACTULOSE [Concomitant]
     Active Substance: LACTULOSE
     Indication: Hyperammonaemia
     Dosage: 10 MILLILITER, TID
     Dates: start: 20241203

REACTIONS (6)
  - Hepatocellular carcinoma [Not Recovered/Not Resolved]
  - Hepatic encephalopathy [Recovering/Resolving]
  - Ascites [Recovering/Resolving]
  - Incarcerated umbilical hernia [Recovered/Resolved]
  - Lysosomal acid lipase deficiency [Unknown]
  - Haemorrhoidal haemorrhage [Not Recovered/Not Resolved]

NARRATIVE: CASE EVENT DATE: 20240501
